FAERS Safety Report 16464113 (Version 1)
Quarter: 2019Q2

REPORT INFORMATION
  Report Type: Spontaneous
  Country: US (occurrence: US)
  Receive Date: 20190621
  Receipt Date: 20190621
  Transmission Date: 20190711
  Serious: No
  Sender: FDA-Public Use
  Company Number: US-ASTELLAS-2018US046918

PATIENT
  Sex: Female

DRUGS (2)
  1. VESICARE [Suspect]
     Active Substance: SOLIFENACIN SUCCINATE
     Indication: URINARY BLADDER SUSPENSION
  2. VESICARE [Suspect]
     Active Substance: SOLIFENACIN SUCCINATE
     Indication: STENT PLACEMENT
     Route: 065

REACTIONS (4)
  - Urinary incontinence [Unknown]
  - Treatment noncompliance [Unknown]
  - Product expiration date issue [Unknown]
  - Product use in unapproved indication [Unknown]
